FAERS Safety Report 9289856 (Version 10)
Quarter: 2014Q2

REPORT INFORMATION
  Report Type: Report from Study
  Country: CA (occurrence: CA)
  Receive Date: 20130515
  Receipt Date: 20140516
  Transmission Date: 20141212
  Serious: Yes (Other)
  Sender: FDA-Public Use
  Company Number: PHHY2012CA113395

PATIENT
  Age: 64 Year
  Sex: Female

DRUGS (3)
  1. SANDOSTATIN LAR [Suspect]
     Indication: CARCINOID TUMOUR
     Dosage: 30 MG, QMO
     Route: 030
     Dates: start: 20121129
  2. SANDOSTATIN LAR [Suspect]
     Dosage: 30 MG, EVERY 3 WEEKS
     Route: 030
  3. SANDOSTATIN LAR [Suspect]
     Dosage: 40 MG, EVERY 4 WEEKS
     Route: 030
     Dates: end: 20140425

REACTIONS (14)
  - Hepatic neoplasm [Unknown]
  - Nephrolithiasis [Unknown]
  - Urinary tract obstruction [Unknown]
  - Hypertension [Unknown]
  - Feeling abnormal [Unknown]
  - Malaise [Not Recovered/Not Resolved]
  - Dizziness [Unknown]
  - Nausea [Unknown]
  - Vomiting [Unknown]
  - Alopecia [Recovering/Resolving]
  - Headache [Recovering/Resolving]
  - Diarrhoea [Unknown]
  - Abdominal distension [Unknown]
  - Abdominal pain [Unknown]
